FAERS Safety Report 16062822 (Version 1)
Quarter: 2019Q1

REPORT INFORMATION
  Report Type: Spontaneous
  Country: JP (occurrence: JP)
  Receive Date: 20190312
  Receipt Date: 20190312
  Transmission Date: 20190418
  Serious: Yes (Hospitalization)
  Sender: FDA-Public Use
  Company Number: JP-AKORN PHARMACEUTICALS-2019AKN00406

PATIENT
  Age: 83 Year
  Sex: Male

DRUGS (8)
  1. BENIDIPINE [Concomitant]
     Active Substance: BENIDIPINE
     Dosage: 8 MG, 1X/DAY
     Route: 065
  2. NICORANDIL [Concomitant]
     Active Substance: NICORANDIL
     Dosage: 10 MG, 1X/DAY
     Route: 065
  3. IMIDAPRIL [Concomitant]
     Active Substance: IMIDAPRIL
     Dosage: 5 MG, 1X/DAY
     Route: 065
  4. RIFAMPIN. [Suspect]
     Active Substance: RIFAMPIN
     Indication: STAPHYLOCOCCAL INFECTION
     Route: 065
  5. WARFARIN [Suspect]
     Active Substance: WARFARIN
     Dosage: 6 MG
  6. BISOPROLOL [Concomitant]
     Active Substance: BISOPROLOL
     Dosage: 2.5 MG, 1X/DAY
     Route: 065
  7. WARFARIN [Suspect]
     Active Substance: WARFARIN
     Dosage: 2 MG, 1X/DAY
     Route: 065
  8. UBIDECARENONE [Concomitant]
     Active Substance: UBIDECARENONE
     Dosage: 30 MG, 1X/DAY
     Route: 065

REACTIONS (2)
  - Drug interaction [Recovered/Resolved]
  - Pulmonary alveolar haemorrhage [Recovered/Resolved]
